FAERS Safety Report 6520833-5 (Version None)
Quarter: 2009Q4

REPORT INFORMATION
  Report Type: 
  Country: None (occurrence: None)
  Receive Date: 20091229
  Receipt Date: 20091217
  Transmission Date: 20100525
  Serious: Yes (Life-Threatening, Hospitalization)
  Sender: FDA-Public Use
  Company Number: NZ-ELI_LILLY_AND_COMPANY-NZ200911000341

PATIENT
  Sex: Male

DRUGS (5)
  1. ZYPREXA [Suspect]
     Indication: SCHIZOAFFECTIVE DISORDER
     Dosage: 20 MG, DAILY (1/D)
     Route: 048
     Dates: start: 20080813, end: 20091102
  2. ZUCLOPENTHIXOL [Concomitant]
     Indication: PSYCHOTIC DISORDER
     Dosage: 300 MG, EVERY 2 WEEKS
     Route: 065
     Dates: start: 20090707
  3. QUETIAPINE [Concomitant]
     Indication: POOR QUALITY SLEEP
     Dosage: 100 MG, 2/D
     Route: 065
     Dates: end: 20091102
  4. QUETIAPINE [Concomitant]
     Dosage: 800 MG, UNKNOWN
     Route: 065
  5. ZOPICLONE [Concomitant]
     Indication: POOR QUALITY SLEEP
     Dosage: 7 D/F, UNKNOWN
     Route: 065
     Dates: end: 20091209

REACTIONS (4)
  - DRUG INTERACTION [None]
  - OVERDOSE [None]
  - RESPIRATORY ARREST [None]
  - SCHIZOAFFECTIVE DISORDER [None]
